FAERS Safety Report 9674819 (Version 1)
Quarter: 2013Q4

REPORT INFORMATION
  Report Type: Spontaneous
  Country: US (occurrence: None)
  Receive Date: 20131106
  Receipt Date: 20131106
  Transmission Date: 20140711
  Serious: Yes (Death)
  Sender: FDA-Public Use
  Company Number: None

PATIENT
  Age: 18 Year
  Sex: Male

DRUGS (1)
  1. ROFERON-A [Suspect]
     Indication: LEUKAEMIA
     Route: 042

REACTIONS (2)
  - Leukaemia [None]
  - Malignant neoplasm progression [None]
